FAERS Safety Report 22090467 (Version 1)
Quarter: 2023Q1

REPORT INFORMATION
  Report Type: Spontaneous
  Country: SG (occurrence: SG)
  Receive Date: 20230313
  Receipt Date: 20230313
  Transmission Date: 20230418
  Serious: Yes (Other)
  Sender: FDA-Public Use
  Company Number: SG-BAUSCH-BL-2023-004054

PATIENT
  Age: 61 Year
  Sex: Female

DRUGS (2)
  1. METRONIDAZOLE [Suspect]
     Active Substance: METRONIDAZOLE
     Indication: Product used for unknown indication
     Route: 065
  2. AMOXICILLIN [Suspect]
     Active Substance: AMOXICILLIN
     Indication: Product used for unknown indication
     Dosage: AMOXICILLIN (SALT NOT SPECIFIED)
     Route: 065

REACTIONS (2)
  - Joint swelling [Unknown]
  - Rash [Unknown]

NARRATIVE: CASE EVENT DATE: 20230117
